FAERS Safety Report 9331411 (Version 3)
Quarter: 2013Q2

REPORT INFORMATION
  Report Type: Spontaneous
  Country: AU (occurrence: AU)
  Receive Date: 20130605
  Receipt Date: 20130626
  Transmission Date: 20140414
  Serious: Yes (Death, Hospitalization)
  Sender: FDA-Public Use
  Company Number: AU-B.I. PHARMACEUTICALS,INC./RIDGEFIELD-2013-AU-00687AU

PATIENT
  Age: 86 Year
  Sex: Male
  Weight: 81 kg

DRUGS (4)
  1. PRADAXA [Suspect]
     Indication: ATRIAL FIBRILLATION
     Dosage: 220 MG
     Dates: start: 20110818
  2. CARTIA [Suspect]
     Dates: start: 2009
  3. LANOXIN [Concomitant]
     Dates: start: 2009
  4. PROTON PUMP INHIBITOR [Concomitant]

REACTIONS (2)
  - Cerebral infarction [Fatal]
  - Lower gastrointestinal haemorrhage [Not Recovered/Not Resolved]
